FAERS Safety Report 8091151-1 (Version None)
Quarter: 2012Q1

REPORT INFORMATION
  Report Type: 
  Country: None (occurrence: None)
  Receive Date: 20120129
  Receipt Date: 20110929
  Transmission Date: 20120608
  Serious: No
  Sender: FDA-Public Use
  Company Number: US-ABBOTT-11P-163-0859338-00

PATIENT
  Sex: Female

DRUGS (2)
  1. HUMIRA [Suspect]
     Indication: CROHN'S DISEASE
     Dosage: DAY 1- 160 MG- 4 PENS
     Route: 058
     Dates: start: 20110901, end: 20110901
  2. HUMIRA [Suspect]
     Dosage: DAY 15

REACTIONS (3)
  - HEADACHE [None]
  - SINUS CONGESTION [None]
  - OROPHARYNGEAL PAIN [None]
